FAERS Safety Report 14820453 (Version 1)
Quarter: 2018Q2

REPORT INFORMATION
  Report Type: Spontaneous
  Country: US (occurrence: US)
  Receive Date: 20180420
  Receipt Date: 20180420
  Transmission Date: 20180711
  Serious: No
  Sender: FDA-Public Use
  Company Number: None

PATIENT
  Age: 32 Year
  Sex: Male

DRUGS (1)
  1. TAFINLAR [Suspect]
     Active Substance: DABRAFENIB MESYLATE
     Route: 048

REACTIONS (5)
  - Malaise [None]
  - Vomiting [None]
  - Stress [None]
  - Blood lactic acid increased [None]
  - Nausea [None]

NARRATIVE: CASE EVENT DATE: 20180420
